FAERS Safety Report 5230789-3 (Version None)
Quarter: 2007Q1

REPORT INFORMATION
  Report Type: 
  Country: None (occurrence: None)
  Receive Date: 20070202
  Receipt Date: 20070125
  Transmission Date: 20070707
  Serious: Yes (Death, Hospitalization)
  Sender: FDA-Public Use
  Company Number: 009-C5013-06040783

PATIENT
  Age: 69 Year
  Sex: Male

DRUGS (2)
  1. CC-5013 (LENALIDOMIDE) (CAPSULES) [Suspect]
     Indication: MULTIPLE MYELOMA
     Dosage: 15 MG, DAILY, ORAL
     Route: 048
     Dates: start: 20060401
  2. DEXAMETHASONE TAB [Concomitant]

REACTIONS (8)
  - ABASIA [None]
  - ANAEMIA [None]
  - ASTHENIA [None]
  - BLOOD CHOLINESTERASE INCREASED [None]
  - DISEASE PROGRESSION [None]
  - GENERAL PHYSICAL HEALTH DETERIORATION [None]
  - HEPATORENAL FAILURE [None]
  - INFECTION [None]
